FAERS Safety Report 24236211 (Version 1)
Quarter: 2024Q3

REPORT INFORMATION
  Report Type: Report from Study
  Country: US (occurrence: US)
  Receive Date: 20240822
  Receipt Date: 20240822
  Transmission Date: 20241017
  Serious: Yes (Other)
  Sender: EXELIXIS
  Company Number: US-EXELIXIS-CABO-24077879

PATIENT
  Age: 35 Year
  Sex: Male

DRUGS (20)
  1. CABOMETYX [Suspect]
     Active Substance: CABOZANTINIB S-MALATE
     Indication: Renal cell carcinoma
     Dosage: 40 MG, QD
     Route: 048
     Dates: start: 20240508, end: 20240612
  2. CABOMETYX [Suspect]
     Active Substance: CABOZANTINIB S-MALATE
     Dosage: 40 MG, QD
     Route: 048
     Dates: start: 20240629
  3. WELIREG [Suspect]
     Active Substance: BELZUTIFAN
     Indication: Renal cell carcinoma
     Dosage: 120 MG, QD
     Route: 048
     Dates: end: 20240613
  4. WELIREG [Suspect]
     Active Substance: BELZUTIFAN
     Dosage: 120 MG, QD
     Route: 048
  5. LOMOTIL [Concomitant]
     Active Substance: ATROPINE SULFATE\DIPHENOXYLATE HYDROCHLORIDE
  6. ROBAXIN [Concomitant]
     Active Substance: METHOCARBAMOL
  7. XGEVA [Concomitant]
     Active Substance: DENOSUMAB
  8. AMOXICILLIN [Concomitant]
     Active Substance: AMOXICILLIN
  9. METRONIDAZOLE [Concomitant]
     Active Substance: METRONIDAZOLE
  10. CLARITIN [Concomitant]
     Active Substance: LORATADINE
  11. ULTRAM [Concomitant]
     Active Substance: TRAMADOL HYDROCHLORIDE
     Indication: Pain
  12. UNSPECIFIED INGREDIENT [Concomitant]
     Active Substance: UNSPECIFIED INGREDIENT
  13. HERBALS\TURMERIC [Concomitant]
     Active Substance: HERBALS\TURMERIC
  14. CALCIUM CARBONATE\CHOLECALCIFEROL [Concomitant]
     Active Substance: CALCIUM CARBONATE\CHOLECALCIFEROL
  15. MEDROL [Concomitant]
     Active Substance: METHYLPREDNISOLONE
  16. Carmol [Concomitant]
  17. PREDNISONE [Concomitant]
     Active Substance: PREDNISONE
  18. MYDRIACYL [Concomitant]
     Active Substance: TROPICAMIDE
  19. DIETARY SUPPLEMENT [Concomitant]
     Active Substance: DIETARY SUPPLEMENT
  20. VITAMIN B COMPLEX [Concomitant]
     Active Substance: CYANOCOBALAMIN\DEXPANTHENOL\NIACINAMIDE\PYRIDOXINE HYDROCHLORIDE\RIBOFLAVIN 5^-PHOSPHATE SODIUM\THIA

REACTIONS (22)
  - Colitis [Unknown]
  - Uveitis [Unknown]
  - Metastases to central nervous system [Unknown]
  - Metastases to bone [Unknown]
  - Blood thyroid stimulating hormone increased [Unknown]
  - Blood calcium decreased [Not Recovered/Not Resolved]
  - Dry skin [Recovered/Resolved]
  - Fatigue [Not Recovered/Not Resolved]
  - Rash [Not Recovered/Not Resolved]
  - Dehydration [Unknown]
  - Urinary tract infection [Recovering/Resolving]
  - Acute sinusitis [Recovered/Resolved]
  - Pain in jaw [Not Recovered/Not Resolved]
  - Feeding disorder [Recovering/Resolving]
  - Swelling face [Recovered/Resolved]
  - Ageusia [Recovered/Resolved]
  - Trismus [Unknown]
  - Lymphadenopathy [Unknown]
  - Parotid gland enlargement [Unknown]
  - Sleep disorder [Recovering/Resolving]
  - Weight fluctuation [Unknown]
  - Cancer pain [Unknown]

NARRATIVE: CASE EVENT DATE: 20240501
